FAERS Safety Report 7135801-2 (Version None)
Quarter: 2010Q4

REPORT INFORMATION
  Report Type: 
  Country: None (occurrence: None)
  Receive Date: 20101203
  Receipt Date: 20101124
  Transmission Date: 20110411
  Serious: Yes (Hospitalization, Disabling)
  Sender: FDA-Public Use
  Company Number: US-MERCK-0911USA04329

PATIENT
  Age: 48 Year
  Sex: Female

DRUGS (2)
  1. FOSAMAX [Suspect]
     Indication: OSTEOPOROSIS
     Route: 048
     Dates: start: 20000101, end: 20070101
  2. BONIVA [Suspect]
     Route: 065

REACTIONS (20)
  - ABSCESS [None]
  - ANXIETY [None]
  - BACK DISORDER [None]
  - BONE DISORDER [None]
  - COLLAGEN DISORDER [None]
  - DENTAL CARIES [None]
  - IMPAIRED HEALING [None]
  - INFECTION [None]
  - LOOSE TOOTH [None]
  - MEDICAL DEVICE PAIN [None]
  - NERVOUSNESS [None]
  - ORAL INFECTION [None]
  - ORAL TORUS [None]
  - OSTEONECROSIS OF JAW [None]
  - PAIN [None]
  - PERIODONTAL DISEASE [None]
  - RESTLESSNESS [None]
  - SWELLING [None]
  - TOOTH DISORDER [None]
  - TOOTH INFECTION [None]
